FAERS Safety Report 8437602-1 (Version None)
Quarter: 2012Q2

REPORT INFORMATION
  Report Type: 
  Country: None (occurrence: None)
  Receive Date: 20120614
  Receipt Date: 20120417
  Transmission Date: 20120825
  Serious: No
  Sender: FDA-Public Use
  Company Number: US-AMGEN-USASP2012024370

PATIENT
  Sex: Female

DRUGS (9)
  1. PRAVACHOL [Concomitant]
     Dosage: UNK
     Route: 048
  2. POTASSIUM ACETATE [Concomitant]
     Dosage: UNK
     Route: 048
  3. PROLIA [Suspect]
     Indication: OSTEOPOROSIS POSTMENOPAUSAL
     Dosage: 60 MG, Q6MO
     Route: 058
     Dates: start: 20111114
  4. HYDROCHLOROTHIAZIDE [Concomitant]
     Dosage: UNK
     Route: 048
  5. CENTRUM SILVER                     /01292501/ [Concomitant]
     Dosage: UNK
     Route: 048
  6. CENTRUM                            /00554501/ [Concomitant]
     Dosage: UNK
     Route: 048
  7. ADALAT [Concomitant]
     Dosage: UNK
     Route: 048
  8. CALCIUM [Concomitant]
     Dosage: UNK
     Route: 048
  9. FERROUS SULFATE TAB [Concomitant]
     Dosage: UNK
     Route: 048

REACTIONS (3)
  - TRISMUS [None]
  - SWELLING [None]
  - FEELING ABNORMAL [None]
